FAERS Safety Report 10162432 (Version 1)
Quarter: 2014Q2

REPORT INFORMATION
  Report Type: Spontaneous
  Country: US (occurrence: US)
  Receive Date: 20140509
  Receipt Date: 20140509
  Transmission Date: 20141212
  Serious: Yes (Other)
  Sender: FDA-Public Use
  Company Number: US-MYLANLABS-2014S1010142

PATIENT
  Sex: Female
  Weight: 56.7 kg

DRUGS (11)
  1. FENTANYL TRANSDERMAL SYSTEM [Suspect]
     Indication: PAIN
     Dosage: CHANGED Q72H
     Route: 062
  2. ADVAIR [Concomitant]
  3. ATROVENT [Concomitant]
  4. PROAIR HFA [Concomitant]
  5. GABAPENTIN [Concomitant]
  6. SIMVASTATIN [Concomitant]
  7. LISINOPRIL [Concomitant]
  8. PAROXETINE [Concomitant]
  9. OMEPRAZOLE [Concomitant]
  10. AMBIEN [Concomitant]
  11. PRAMIPEXOLE [Concomitant]

REACTIONS (4)
  - Drug effect decreased [Not Recovered/Not Resolved]
  - Drug withdrawal syndrome [Recovered/Resolved]
  - Pain [Not Recovered/Not Resolved]
  - Wrong technique in drug usage process [Not Recovered/Not Resolved]
